FAERS Safety Report 8375914-0 (Version None)
Quarter: 2012Q2

REPORT INFORMATION
  Report Type: 
  Country: None (occurrence: None)
  Receive Date: 20120522
  Receipt Date: 20120511
  Transmission Date: 20120825
  Serious: Yes (Hospitalization, Other)
  Sender: FDA-Public Use
  Company Number: FR-BRISTOL-MYERS SQUIBB COMPANY-16589434

PATIENT
  Age: 43 Year
  Sex: Male

DRUGS (4)
  1. ISENTRESS [Suspect]
     Dates: start: 20081118
  2. REYATAZ [Suspect]
     Indication: HIV INFECTION
     Dosage: 1 DF: 1 UNIT NOS
     Route: 048
     Dates: start: 20081118
  3. EPIVIR [Suspect]
     Dates: start: 20081118
  4. NORVIR [Suspect]
     Dates: start: 20081118

REACTIONS (4)
  - NEPHROLITHIASIS [None]
  - DRUG LEVEL INCREASED [None]
  - URINARY TRACT INFECTION ENTEROCOCCAL [None]
  - HYPERGLYCAEMIA [None]
